FAERS Safety Report 13309012 (Version 2)
Quarter: 2017Q1

REPORT INFORMATION
  Report Type: Report from Study
  Country: US (occurrence: US)
  Receive Date: 20170308
  Receipt Date: 20170324
  Transmission Date: 20170428
  Serious: Yes (Hospitalization, Other)
  Sender: FDA-Public Use
  Company Number: PHHO2017US001835

PATIENT
  Sex: Male
  Weight: 83 kg

DRUGS (9)
  1. BLINDED PAZOPANIB [Suspect]
     Active Substance: PAZOPANIB
     Indication: ANAPLASTIC THYROID CANCER
     Dosage: CODE NOT BROKEN
     Route: 048
     Dates: start: 20151217, end: 20160105
  2. BLINDED NO TREATMENT RECEIVED [Suspect]
     Active Substance: INVESTIGATIONAL PRODUCT
     Dosage: CODE NOT BROKEN
     Route: 048
     Dates: start: 20160113
  3. COMPARATOR PACLITAXEL [Suspect]
     Active Substance: PACLITAXEL
     Dosage: 80 MG/M2, UNK
     Route: 042
     Dates: start: 20160113, end: 20160127
  4. COMPARATOR PACLITAXEL [Suspect]
     Active Substance: PACLITAXEL
     Dosage: REDUCED DOSE
     Route: 042
     Dates: start: 20160203
  5. BLINDED NO TREATMENT RECEIVED [Suspect]
     Active Substance: INVESTIGATIONAL PRODUCT
     Indication: ANAPLASTIC THYROID CANCER
     Dosage: CODE NOT BROKEN
     Route: 048
     Dates: start: 20151217, end: 20160105
  6. BLINDED PACLITAXEL [Suspect]
     Active Substance: PACLITAXEL
     Dosage: CODE NOT BROKEN
     Route: 048
     Dates: start: 20160113
  7. COMPARATOR PACLITAXEL [Suspect]
     Active Substance: PACLITAXEL
     Indication: ANAPLASTIC THYROID CANCER
     Dosage: 80 MG/M2, QW
     Route: 042
     Dates: start: 20151217, end: 20160105
  8. BLINDED PAZOPANIB [Suspect]
     Active Substance: PAZOPANIB
     Dosage: CODE NOT BROKEN
     Route: 048
     Dates: start: 20160113
  9. BLINDED PACLITAXEL [Suspect]
     Active Substance: PACLITAXEL
     Indication: ANAPLASTIC THYROID CANCER
     Dosage: CODE NOT BROKEN
     Route: 048
     Dates: start: 20151217, end: 20160105

REACTIONS (3)
  - Neutrophil count decreased [Recovered/Resolved]
  - Pneumatosis intestinalis [Recovered/Resolved]
  - Pneumonia aspiration [Recovered/Resolved]

NARRATIVE: CASE EVENT DATE: 20160105
